FAERS Safety Report 8319419-1 (Version None)
Quarter: 2012Q2

REPORT INFORMATION
  Report Type: 
  Country: None (occurrence: None)
  Receive Date: 20120427
  Receipt Date: 20120423
  Transmission Date: 20120825
  Serious: Yes (Death)
  Sender: FDA-Public Use
  Company Number: PHHY2012US035457

PATIENT
  Age: 58 Year
  Sex: Male

DRUGS (6)
  1. CITALOPRAM HYDROBROMIDE [Suspect]
     Dosage: UNK UKN, UNK
  2. DIAZEPAM [Suspect]
     Dosage: UNK UKN, UNK
  3. BISOPROLOL FUMARATE AND HYDROCHLOROTHIAZIDE [Suspect]
     Dosage: UNK UKN, UNK
  4. ARIPIPRAZOLE [Suspect]
     Dosage: UNK UKN, UNK
  5. BUPROPION HYDROCHLORIDE [Suspect]
     Dosage: UNK UKN, UNK
  6. BUSPIRONE HCL [Suspect]
     Dosage: UNK UKN, UNK

REACTIONS (1)
  - COMPLETED SUICIDE [None]
